FAERS Safety Report 9538682 (Version 2)
Quarter: 2013Q3

REPORT INFORMATION
  Report Type: Report from Study
  Country: US (occurrence: US)
  Receive Date: 20130920
  Receipt Date: 20130920
  Transmission Date: 20140515
  Serious: Yes (Other)
  Sender: FDA-Public Use
  Company Number: PHEH2013US009833

PATIENT
  Sex: Male

DRUGS (8)
  1. TOBI [Suspect]
     Indication: CYSTIC FIBROSIS
     Dosage: 300 MG, BID
     Dates: start: 2008
  2. ALBUTEROL [Concomitant]
     Dosage: UNK
  3. ADVAIR [Concomitant]
     Dosage: UNK
  4. CLARITIN [Concomitant]
     Dosage: UNK
  5. VIT D [Concomitant]
     Dosage: UNK
  6. VEST [Concomitant]
     Dosage: UNK
  7. CREON [Concomitant]
     Dosage: UNK
  8. ADEK [Concomitant]
     Dosage: UNK

REACTIONS (4)
  - Streptococcus test positive [Unknown]
  - Staphylococcus test positive [Unknown]
  - Pseudomonas test positive [Unknown]
  - Sinusitis [Recovered/Resolved]
